FAERS Safety Report 4759573-1 (Version None)
Quarter: 2005Q3

REPORT INFORMATION
  Report Type: 
  Country: None (occurrence: None)
  Receive Date: 20050901
  Receipt Date: 20050310
  Transmission Date: 20060218
  Serious: Yes (Hospitalization)
  Sender: FDA-Public Use
  Company Number: US-MERCK-0503USA02304

PATIENT
  Age: 56 Year
  Sex: Male
  Weight: 98 kg

DRUGS (16)
  1. VIOXX [Suspect]
     Indication: NECK PAIN
     Route: 048
     Dates: start: 20020901, end: 20050206
  2. VIOXX [Suspect]
     Route: 048
  3. VIOXX [Suspect]
     Route: 048
     Dates: start: 20040401, end: 20040801
  4. VIOXX [Suspect]
     Route: 048
     Dates: start: 20031201
  5. VIOXX [Suspect]
     Route: 048
     Dates: start: 20000101
  6. VIOXX [Suspect]
     Indication: ARTHRALGIA
     Route: 048
     Dates: start: 20020901, end: 20050206
  7. VIOXX [Suspect]
     Route: 048
  8. VIOXX [Suspect]
     Route: 048
     Dates: start: 20040401, end: 20040801
  9. VIOXX [Suspect]
     Route: 048
     Dates: start: 20031201
  10. VIOXX [Suspect]
     Route: 048
     Dates: start: 20000101
  11. TYLENOL [Concomitant]
     Route: 065
     Dates: start: 19970130
  12. ADVIL [Concomitant]
     Route: 065
  13. EXTRA STRENGTH BAYER PLUS [Concomitant]
     Route: 065
  14. ALEVE [Concomitant]
     Route: 065
     Dates: start: 19970130
  15. ASPIRIN [Concomitant]
     Route: 065
  16. CELEBREX [Concomitant]
     Route: 065

REACTIONS (36)
  - ALANINE AMINOTRANSFERASE INCREASED [None]
  - ANGINA PECTORIS [None]
  - ANGINA UNSTABLE [None]
  - BLOOD CHOLESTEROL INCREASED [None]
  - BLOOD GLUCOSE INCREASED [None]
  - BLOOD PRESSURE INCREASED [None]
  - BUNDLE BRANCH BLOCK RIGHT [None]
  - CAROTID ARTERY STENOSIS [None]
  - CHEST DISCOMFORT [None]
  - CONCUSSION [None]
  - CORNEAL ABRASION [None]
  - CORONARY ARTERY DISEASE [None]
  - COUGH [None]
  - DIARRHOEA [None]
  - DIVERTICULITIS [None]
  - DRUG HYPERSENSITIVITY [None]
  - EMOTIONAL DISTRESS [None]
  - FAMILY STRESS [None]
  - GASTROINTESTINAL DISORDER [None]
  - GASTROOESOPHAGEAL REFLUX DISEASE [None]
  - HERNIA [None]
  - HIGH DENSITY LIPOPROTEIN DECREASED [None]
  - HYPERPHAGIA [None]
  - LOW DENSITY LIPOPROTEIN INCREASED [None]
  - MUSCULOSKELETAL DISCOMFORT [None]
  - MYOCARDIAL INFARCTION [None]
  - NOCTURIA [None]
  - OESOPHAGEAL DISORDER [None]
  - PNEUMONIA [None]
  - POLYURIA [None]
  - SINUS BRADYCARDIA [None]
  - STRESS [None]
  - TRICUSPID VALVE INCOMPETENCE [None]
  - TYMPANIC MEMBRANE PERFORATION [None]
  - VENTRICULAR TACHYCARDIA [None]
  - WEIGHT INCREASED [None]
